FAERS Safety Report 16283456 (Version 2)
Quarter: 2019Q2

REPORT INFORMATION
  Report Type: Spontaneous
  Country: CZ (occurrence: CZ)
  Receive Date: 20190507
  Receipt Date: 20190628
  Transmission Date: 20190711
  Serious: Yes (Hospitalization)
  Sender: FDA-Public Use
  Company Number: CZ-BAUSCH-BL-2019-012863

PATIENT
  Age: 63 Year
  Sex: Male

DRUGS (5)
  1. ROSUVASTATIN. [Concomitant]
     Active Substance: ROSUVASTATIN
     Indication: TYPE V HYPERLIPIDAEMIA
  2. INSULIN [Suspect]
     Active Substance: INSULIN NOS
     Indication: TYPE 2 DIABETES MELLITUS
     Route: 065
     Dates: end: 2017
  3. GLIPTIN [Suspect]
     Active Substance: SITAGLIPTIN PHOSPHATE
     Indication: TYPE 2 DIABETES MELLITUS
     Route: 048
  4. METFORMIN [Suspect]
     Active Substance: METFORMIN HYDROCHLORIDE
     Indication: TYPE 2 DIABETES MELLITUS
     Route: 048
  5. PERINDOPRIL [Concomitant]
     Active Substance: PERINDOPRIL
     Indication: HYPERTENSION

REACTIONS (1)
  - Hypoglycaemia [Not Recovered/Not Resolved]

NARRATIVE: CASE EVENT DATE: 2017
